FAERS Safety Report 13333974 (Version 1)
Quarter: 2017Q1

REPORT INFORMATION
  Report Type: Spontaneous
  Country: US (occurrence: US)
  Receive Date: 20170314
  Receipt Date: 20170314
  Transmission Date: 20170428
  Serious: No
  Sender: FDA-Public Use
  Company Number: US-DEPOMED, INC.-US-2016DEP012420

PATIENT

DRUGS (1)
  1. GRALISE [Suspect]
     Active Substance: GABAPENTIN
     Indication: PRODUCT USED FOR UNKNOWN INDICATION
     Dosage: 1800 MG, QD (WITH EVENING MEALS)
     Route: 048
     Dates: start: 20160830, end: 2016

REACTIONS (3)
  - Dizziness [Unknown]
  - Feeling abnormal [Unknown]
  - Mood altered [Unknown]

NARRATIVE: CASE EVENT DATE: 2016
